FAERS Safety Report 7790690-8 (Version None)
Quarter: 2011Q3

REPORT INFORMATION
  Report Type: 
  Country: None (occurrence: None)
  Receive Date: 20110930
  Receipt Date: 20110921
  Transmission Date: 20111222
  Serious: Yes (Disabling, Other)
  Sender: FDA-Public Use
  Company Number: JP-ASTRAZENECA-2011SE56497

PATIENT
  Age: 58 Year
  Sex: Female

DRUGS (2)
  1. ROPIVACAINE HYDROCHLORIDE [Suspect]
     Route: 008
     Dates: start: 20090901, end: 20090901
  2. PROPOFOL [Suspect]
     Route: 042

REACTIONS (3)
  - MOTOR DYSFUNCTION [None]
  - CONVULSION [None]
  - MYOCLONUS [None]
